FAERS Safety Report 21651231 (Version 1)
Quarter: 2022Q4

REPORT INFORMATION
  Report Type: Spontaneous
  Country: US (occurrence: US)
  Receive Date: 20221128
  Receipt Date: 20221128
  Transmission Date: 20230113
  Serious: Yes (Hospitalization)
  Sender: FDA-Public Use
  Company Number: US-DSJP-DSU-2022-142595

PATIENT
  Sex: Female

DRUGS (1)
  1. ENHERTU [Suspect]
     Active Substance: FAM-TRASTUZUMAB DERUXTECAN-NXKI
     Indication: Breast cancer
     Dosage: UNK
     Route: 065
     Dates: start: 2022

REACTIONS (2)
  - Pneumonitis [Not Recovered/Not Resolved]
  - Endotracheal intubation [Not Recovered/Not Resolved]

NARRATIVE: CASE EVENT DATE: 20220101
